FAERS Safety Report 17299536 (Version 1)
Quarter: 2020Q1

REPORT INFORMATION
  Report Type: Spontaneous
  Country: US (occurrence: US)
  Receive Date: 20200121
  Receipt Date: 20200121
  Transmission Date: 20200409
  Serious: No
  Sender: FDA-Public Use
  Company Number: None

PATIENT
  Weight: 94.86 kg

DRUGS (7)
  1. CLONIDINE 0.1MG [Concomitant]
     Active Substance: CLONIDINE
  2. PRAVASTATIN SODIUM 20MG [Concomitant]
  3. LOTEMAX 0.5% [Concomitant]
  4. ERLEADA [Suspect]
     Active Substance: APALUTAMIDE
     Indication: PROSTATE CANCER
     Route: 048
     Dates: start: 20181102, end: 20200121
  5. AMLODIPINE [Concomitant]
     Active Substance: AMLODIPINE BESYLATE
  6. LOSARTAN POTASSIUM-HCTZ 100-12.5MG [Concomitant]
  7. METOPROLOL SUCCINATE ER 100MG [Concomitant]

REACTIONS (1)
  - Fatigue [None]
